FAERS Safety Report 5827066-6 (Version None)
Quarter: 2008Q3

REPORT INFORMATION
  Report Type: 
  Country: None (occurrence: None)
  Receive Date: 20080730
  Receipt Date: 20080722
  Transmission Date: 20090109
  Serious: Yes (Hospitalization)
  Sender: FDA-Public Use
  Company Number: B0463302A

PATIENT
  Sex: Female

DRUGS (12)
  1. PAROXETINE HCL [Suspect]
     Indication: DEPRESSION
     Route: 065
     Dates: start: 20000208
  2. ACETAMINOPHEN W/ CODEINE [Concomitant]
  3. TEMAZEPAM [Concomitant]
     Dates: start: 19930101
  4. STATINS [Concomitant]
     Dates: start: 20050101
  5. ANTIHYPERTENSIVES [Concomitant]
     Dates: start: 20050101
  6. LEVOTHYROXINE SODIUM [Concomitant]
     Dates: start: 20041101
  7. RAMIPRIL [Concomitant]
  8. ROSUVASTATIN CALCIUM [Concomitant]
  9. TEMAZEPAM [Concomitant]
  10. LEVOTHYROXINE SODIUM [Concomitant]
  11. OLMESARTAN MEDOXOMIL [Concomitant]
  12. ACETAMINOPHEN W/ CODEINE [Concomitant]

REACTIONS (16)
  - ADVERSE DRUG REACTION [None]
  - DISTURBANCE IN ATTENTION [None]
  - DIZZINESS [None]
  - DRUG WITHDRAWAL SYNDROME [None]
  - FATIGUE [None]
  - HEADACHE [None]
  - HYPERHIDROSIS [None]
  - MEMORY IMPAIRMENT [None]
  - NAUSEA [None]
  - NIGHTMARE [None]
  - PALPITATIONS [None]
  - PARAESTHESIA [None]
  - SUICIDAL IDEATION [None]
  - TREMOR [None]
  - VERTIGO [None]
  - VISUAL IMPAIRMENT [None]
